FAERS Safety Report 6583757-3 (Version None)
Quarter: 2010Q1

REPORT INFORMATION
  Report Type: 
  Country: None (occurrence: None)
  Receive Date: 20100212
  Receipt Date: 20100212
  Transmission Date: 20100710
  Serious: Yes (Hospitalization)
  Sender: FDA-Public Use
  Company Number: None

PATIENT
  Sex: Female

DRUGS (6)
  1. HUMIRA [Suspect]
     Indication: PSORIASIS
     Dosage: 40MG X2 SQ 40MG X1 SQ
     Route: 058
     Dates: start: 20100119
  2. HUMIRA [Suspect]
     Indication: PSORIASIS
     Dosage: 40MG X2 SQ 40MG X1 SQ
     Route: 058
     Dates: start: 20100127
  3. TRIAMCINOLONE [Concomitant]
  4. VICODIN [Concomitant]
  5. ATARAX [Concomitant]
  6. GEODON [Concomitant]

REACTIONS (9)
  - ABDOMINAL PAIN LOWER [None]
  - ABSCESS INTESTINAL [None]
  - DILATATION INTRAHEPATIC DUCT ACQUIRED [None]
  - DISEASE PROGRESSION [None]
  - DIVERTICULITIS [None]
  - HEPATIC STEATOSIS [None]
  - HEPATOMEGALY [None]
  - NAUSEA [None]
  - VOMITING [None]
